FAERS Safety Report 23061997 (Version 2)
Quarter: 2023Q4

REPORT INFORMATION
  Report Type: Report from Study
  Country: IT (occurrence: IT)
  Receive Date: 20231013
  Receipt Date: 20231030
  Transmission Date: 20240109
  Serious: Yes (Other)
  Sender: FDA-Public Use
  Company Number: IT-JNJFOC-20231021740

PATIENT

DRUGS (1)
  1. SPRAVATO [Suspect]
     Active Substance: ESKETAMINE
     Indication: Depression

REACTIONS (5)
  - Hypertension [Unknown]
  - Cognitive disorder [Unknown]
  - Nausea [Unknown]
  - Depression [Unknown]
  - Drug ineffective [Unknown]
